FAERS Safety Report 9061565 (Version 1)
Quarter: 2012Q4

REPORT INFORMATION
  Report Type: Spontaneous
  Country: US (occurrence: None)
  Receive Date: 20120910
  Receipt Date: 20120910
  Transmission Date: 20130627
  Serious: Yes (Death)
  Sender: FDA-Public Use
  Company Number: UTC-021515

PATIENT
  Age: 26 Year
  Sex: Male
  Weight: 52.7 kg

DRUGS (4)
  1. REMODULIN [Suspect]
     Indication: PRIMARY PULMONARY HYPERTENSION
     Dosage: 144 ug/kg (0.1 ug/kg,1 in 1 min), Intravenous drip
     Dates: start: 20120122
  2. REVATIO (SILDENAFIL CITRATE) [Concomitant]
  3. TRACLEER (BOSENTAN) [Concomitant]
  4. COUMADIN (WARFARIN SODIUM) [Concomitant]

REACTIONS (1)
  - Right ventricular failure [None]
